FAERS Safety Report 24010476 (Version 1)
Quarter: 2024Q2

REPORT INFORMATION
  Report Type: Spontaneous
  Country: CN (occurrence: CN)
  Receive Date: 20240625
  Receipt Date: 20240625
  Transmission Date: 20240716
  Serious: Yes (Life-Threatening)
  Sender: FDA-Public Use
  Company Number: CN-SHANGHAI JUNSHI BIOSCIENCES CO., LTD.-CN2024010380

PATIENT

DRUGS (5)
  1. TORIPALIMAB [Suspect]
     Active Substance: TORIPALIMAB
     Indication: Hepatic cancer
     Dosage: 200 MG, MONTHLY
     Route: 041
     Dates: start: 20240229, end: 20240229
  2. TORIPALIMAB [Suspect]
     Active Substance: TORIPALIMAB
     Dosage: 200 MG, MONTHLY
     Route: 041
     Dates: start: 20240330, end: 20240330
  3. TORIPALIMAB [Suspect]
     Active Substance: TORIPALIMAB
     Dosage: 200 MG, MONTHLY
     Route: 041
     Dates: start: 20240423, end: 20240423
  4. TORIPALIMAB [Suspect]
     Active Substance: TORIPALIMAB
     Dosage: 200 MG, MONTHLY
     Route: 041
     Dates: start: 20240524, end: 20240524
  5. TORIPALIMAB [Suspect]
     Active Substance: TORIPALIMAB
     Dosage: 200 MG, MONTHLY
     Route: 041
     Dates: end: 202407

REACTIONS (2)
  - Blood creatinine increased [Unknown]
  - Off label use [Unknown]

NARRATIVE: CASE EVENT DATE: 20240229
